FAERS Safety Report 6756416-1 (Version None)
Quarter: 2010Q2

REPORT INFORMATION
  Report Type: 
  Country: None (occurrence: None)
  Receive Date: 20100604
  Receipt Date: 20100528
  Transmission Date: 20101027
  Serious: Yes (Hospitalization, Disabling)
  Sender: FDA-Public Use
  Company Number: A0785445A

PATIENT
  Age: 64 Year
  Sex: Male
  Weight: 68.2 kg

DRUGS (10)
  1. AVANDIA [Suspect]
     Dosage: 4MG TWICE PER DAY
     Route: 048
     Dates: start: 20001214, end: 20070501
  2. PREVACID [Concomitant]
  3. PROTONIX [Concomitant]
  4. GLUCOPHAGE [Concomitant]
  5. GLIPIZIDE [Concomitant]
  6. VASOTEC [Concomitant]
  7. METOPROLOL TARTRATE [Concomitant]
  8. ZOCOR [Concomitant]
  9. PERCOCET [Concomitant]
  10. INSULIN [Concomitant]

REACTIONS (3)
  - ANGINA PECTORIS [None]
  - CARDIAC FAILURE CONGESTIVE [None]
  - MYOCARDIAL INFARCTION [None]
